FAERS Safety Report 23855543 (Version 1)
Quarter: 2024Q2

REPORT INFORMATION
  Report Type: Spontaneous
  Country: CN (occurrence: CN)
  Receive Date: 20240514
  Receipt Date: 20240514
  Transmission Date: 20240716
  Serious: Yes (Life-Threatening, Hospitalization, Other)
  Sender: FDA-Public Use
  Company Number: CN-ABBVIE-5758082

PATIENT
  Sex: Female
  Weight: 59 kg

DRUGS (1)
  1. VENETOCLAX [Suspect]
     Active Substance: VENETOCLAX
     Indication: Acute myeloid leukaemia
     Route: 048
     Dates: start: 20240421, end: 20240502

REACTIONS (6)
  - Myelosuppression [Recovering/Resolving]
  - Dizziness [Recovering/Resolving]
  - Fatigue [Recovering/Resolving]
  - Cytopenia [Recovering/Resolving]
  - Acute myeloid leukaemia [Unknown]
  - Myelodysplastic syndrome transformation [Unknown]

NARRATIVE: CASE EVENT DATE: 20240101
